FAERS Safety Report 8538869 (Version 5)
Quarter: 2013Q3

REPORT INFORMATION
  Report Type: Report from Study
  Country: US (occurrence: US)
  Receive Date: 20120501
  Receipt Date: 20130905
  Transmission Date: 20140515
  Serious: Yes (Life-Threatening, Hospitalization, Other)
  Sender: FDA-Public Use
  Company Number: US-ACTELION-A-US2012-64651

PATIENT
  Age: 65 Year
  Sex: Female

DRUGS (3)
  1. TRACLEER [Suspect]
     Indication: PULMONARY ARTERIAL HYPERTENSION
     Dosage: UNK
     Route: 048
  2. COUMADIN [Concomitant]
  3. PLAVIX [Concomitant]

REACTIONS (15)
  - Inappropriate schedule of drug administration [Unknown]
  - Cardio-respiratory arrest [Recovering/Resolving]
  - Loss of consciousness [Recovering/Resolving]
  - Myocardial infarction [Unknown]
  - Coronary artery disease [Unknown]
  - Angioplasty [Unknown]
  - Cardiac fibrillation [Recovering/Resolving]
  - Chest pain [Unknown]
  - Constipation [Recovering/Resolving]
  - Haemorrhage [Unknown]
  - Blood pressure increased [Unknown]
  - Hypotension [Recovering/Resolving]
  - Dyspnoea [Unknown]
  - Chest pain [Recovering/Resolving]
  - Drug dose omission [Unknown]
